FAERS Safety Report 5568883-X (Version None)
Quarter: 2007Q4

REPORT INFORMATION
  Report Type: 
  Country: None (occurrence: None)
  Receive Date: 20071220
  Receipt Date: 20070226
  Transmission Date: 20080405
  Serious: No
  Sender: FDA-Public Use
  Company Number: A0640974A

PATIENT
  Age: 56 Year
  Sex: Female

DRUGS (2)
  1. AVODART [Suspect]
     Indication: DRUG USE FOR UNKNOWN INDICATION
     Route: 048
     Dates: start: 20070225
  2. PREVACID [Concomitant]

REACTIONS (1)
  - RASH [None]
